FAERS Safety Report 13825420 (Version 2)
Quarter: 2017Q3

REPORT INFORMATION
  Report Type: Spontaneous
  Country: US (occurrence: US)
  Receive Date: 20170802
  Receipt Date: 20170927
  Transmission Date: 20171127
  Serious: No
  Sender: FDA-Public Use
  Company Number: US-ASTRAZENECA-2017SE78184

PATIENT
  Age: 84 Year
  Sex: Female

DRUGS (3)
  1. NEXIUM 24HR [Suspect]
     Active Substance: ESOMEPRAZOLE MAGNESIUM
     Indication: EATING DISORDER
     Route: 048
     Dates: start: 2017
  2. VESICARE [Suspect]
     Active Substance: SOLIFENACIN SUCCINATE
     Indication: HYPERTONIC BLADDER
     Dosage: UNK
     Route: 065
     Dates: start: 20170714, end: 20170810
  3. ENALAPRIL MALEATE. [Concomitant]
     Active Substance: ENALAPRIL MALEATE

REACTIONS (8)
  - Feeling abnormal [Unknown]
  - Intentional product misuse [Unknown]
  - Somnolence [Unknown]
  - Decreased appetite [Recovering/Resolving]
  - Hyperchlorhydria [Recovering/Resolving]
  - Oesophageal disorder [Unknown]
  - Malaise [Recovering/Resolving]
  - Renal disorder [Unknown]

NARRATIVE: CASE EVENT DATE: 20170714
